FAERS Safety Report 19873527 (Version 1)
Quarter: 2021Q3

REPORT INFORMATION
  Report Type: Spontaneous
  Country: RU (occurrence: RU)
  Receive Date: 20210923
  Receipt Date: 20210923
  Transmission Date: 20211014
  Serious: Yes (Life-Threatening, Hospitalization)
  Sender: FDA-Public Use
  Company Number: RU-ELI_LILLY_AND_COMPANY-RU202109006637

PATIENT
  Age: 67 Year
  Sex: Female

DRUGS (2)
  1. ANASTROZOLE. [Concomitant]
     Active Substance: ANASTROZOLE
     Indication: HORMONE RECEPTOR POSITIVE HER2 NEGATIVE BREAST CANCER
     Dosage: UNK, CYCLICAL
     Route: 065
  2. ZENLISTIC [ABEMACICLIB] [Suspect]
     Active Substance: ABEMACICLIB
     Indication: BREAST CANCER METASTATIC
     Dosage: UNK, CYCLICAL
     Route: 065

REACTIONS (4)
  - Diarrhoea [Recovering/Resolving]
  - Neutropenia [Recovering/Resolving]
  - Pruritus [Recovering/Resolving]
  - Blood creatinine abnormal [Recovering/Resolving]
